FAERS Safety Report 6911090-6 (Version None)
Quarter: 2010Q3

REPORT INFORMATION
  Report Type: 
  Country: None (occurrence: None)
  Receive Date: 20100806
  Receipt Date: 20100727
  Transmission Date: 20110219
  Serious: Yes (Hospitalization, Other)
  Sender: FDA-Public Use
  Company Number: JP-AMGEN-QUU428701

PATIENT
  Age: 65 Year
  Sex: Male

DRUGS (2)
  1. ENBREL [Suspect]
     Indication: RHEUMATOID ARTHRITIS
     Dosage: UNSPECIFIED
     Route: 058
     Dates: end: 20100730
  2. PREDONINE [Concomitant]
     Dosage: UNSPECIFIED
     Route: 048

REACTIONS (3)
  - BONE NEOPLASM MALIGNANT [None]
  - GASTRIC CANCER [None]
  - LUNG NEOPLASM MALIGNANT [None]
